FAERS Safety Report 24822990 (Version 1)
Quarter: 2025Q1

REPORT INFORMATION
  Report Type: Spontaneous
  Country: US (occurrence: US)
  Receive Date: 20250109
  Receipt Date: 20250109
  Transmission Date: 20250409
  Serious: Yes (Hospitalization)
  Sender: DEXCEL
  Company Number: US-PERRIGO-25US000041

PATIENT
  Sex: Female

DRUGS (1)
  1. OMEPRAZOLE [Suspect]
     Active Substance: OMEPRAZOLE
     Indication: Dyspepsia
     Route: 048

REACTIONS (5)
  - Chromaturia [Unknown]
  - Bilirubin urine present [Unknown]
  - Pain [Unknown]
  - Malaise [Unknown]
  - Dyspnoea [Unknown]
